FAERS Safety Report 4290522-9 (Version None)
Quarter: 2004Q1

REPORT INFORMATION
  Report Type: 
  Country: None (occurrence: None)
  Receive Date: 20040126
  Receipt Date: 20031110
  Transmission Date: 20041129
  Serious: No
  Sender: FDA-Public Use
  Company Number: USA030948023

PATIENT
  Age: 68 Year
  Sex: Female

DRUGS (8)
  1. FORTEO [Suspect]
     Indication: ARTHROPATHY
     Dates: start: 20030723
  2. FORTEO [Suspect]
     Indication: JOINT ARTHROPLASTY
     Dates: start: 20030723
  3. PROZAC [Concomitant]
  4. DETROL [Concomitant]
  5. OXYCONTIN [Concomitant]
  6. BEXTRA [Concomitant]
  7. SYNTHROID [Concomitant]
  8. WELLBUTRIN [Concomitant]

REACTIONS (1)
  - WEIGHT INCREASED [None]
